FAERS Safety Report 8478913-3 (Version None)
Quarter: 2012Q2

REPORT INFORMATION
  Report Type: 
  Country: None (occurrence: None)
  Receive Date: 20120629
  Receipt Date: 20120615
  Transmission Date: 20120825
  Serious: Yes (Death, Disabling, Other)
  Sender: FDA-Public Use
  Company Number: JP-ROCHE-1063746

PATIENT
  Sex: Male
  Weight: 48 kg

DRUGS (11)
  1. ALIMTA [Suspect]
     Indication: LUNG ADENOCARCINOMA RECURRENT
     Route: 041
     Dates: start: 20120313, end: 20120313
  2. EVIPROSTAT [Concomitant]
     Route: 048
     Dates: end: 20120415
  3. FLIVASTATIN SODIUM [Concomitant]
     Route: 048
     Dates: end: 20120415
  4. TANNALBIN [Concomitant]
     Route: 048
     Dates: end: 20120415
  5. NEUER [Concomitant]
     Route: 048
     Dates: end: 20120415
  6. MEDICON [Concomitant]
     Route: 048
     Dates: end: 20120415
  7. PANVITAN [Concomitant]
     Indication: PROPHYLAXIS
     Route: 048
     Dates: start: 20120306, end: 20120415
  8. EXCELASE (UNK INGREDIENTS) [Concomitant]
     Route: 048
     Dates: end: 20120415
  9. URSO 250 [Concomitant]
     Route: 048
     Dates: end: 20120415
  10. AVASTIN [Suspect]
     Indication: LUNG NEOPLASM MALIGNANT
     Route: 041
     Dates: start: 20120313, end: 20120313
  11. CARBOPLATIN [Suspect]
     Indication: LUNG ADENOCARCINOMA RECURRENT
     Dosage: DOSAGE: 5 AUC A DAY
     Route: 041
     Dates: start: 20120313, end: 20120313

REACTIONS (8)
  - PULMONARY EMBOLISM [None]
  - NEUTROPHIL COUNT DECREASED [None]
  - VOMITING [None]
  - PYREXIA [None]
  - LEUKOENCEPHALOPATHY [None]
  - WHITE BLOOD CELL COUNT DECREASED [None]
  - DECREASED APPETITE [None]
  - PNEUMONIA ASPIRATION [None]
